FAERS Safety Report 15480195 (Version 5)
Quarter: 2018Q4

REPORT INFORMATION
  Report Type: Report from Study
  Country: US (occurrence: US)
  Receive Date: 20181009
  Receipt Date: 20181204
  Transmission Date: 20190205
  Serious: Yes (Hospitalization)
  Sender: FDA-Public Use
  Company Number: US-TAKEDA-2018TUS028035

PATIENT
  Sex: Female

DRUGS (1)
  1. PONATINIB [Suspect]
     Active Substance: PONATINIB
     Indication: CHRONIC MYELOID LEUKAEMIA
     Dosage: 15 MG, QD
     Route: 048
     Dates: start: 20180921

REACTIONS (10)
  - Metamorphopsia [Unknown]
  - Oral disorder [Unknown]
  - Migraine [Unknown]
  - Skin exfoliation [Unknown]
  - Wheezing [Unknown]
  - Hypoaesthesia oral [Unknown]
  - Dry skin [Unknown]
  - Peripheral swelling [Unknown]
  - Pain in extremity [Unknown]
  - Rash [Unknown]
